FAERS Safety Report 20956508 (Version 1)
Quarter: 2022Q2

REPORT INFORMATION
  Report Type: Report from Study
  Country: US (occurrence: US)
  Receive Date: 20220614
  Receipt Date: 20220614
  Transmission Date: 20220720
  Serious: Yes (Other)
  Sender: FDA-Public Use
  Company Number: US-NOVARTISPH-NVSC2022US130730

PATIENT
  Age: 48 Year
  Sex: Female

DRUGS (1)
  1. COSENTYX [Suspect]
     Active Substance: SECUKINUMAB
     Indication: Psoriatic arthropathy
     Dosage: ONCE A WEEK FOR 5 WEEKS AND THEN Q 4
     Route: 058

REACTIONS (3)
  - Mucinous adenocarcinoma of appendix [Unknown]
  - Sepsis [Unknown]
  - Illness [Unknown]

NARRATIVE: CASE EVENT DATE: 20200101
